FAERS Safety Report 16789729 (Version 1)
Quarter: 2019Q3

REPORT INFORMATION
  Report Type: Spontaneous
  Country: US (occurrence: US)
  Receive Date: 20190910
  Receipt Date: 20190910
  Transmission Date: 20191005
  Serious: No
  Sender: FDA-Public Use
  Company Number: US-SA-2019SA245418

PATIENT
  Age: 50 Year
  Sex: Female

DRUGS (6)
  1. FORTEO [Concomitant]
     Active Substance: TERIPARATIDE
  2. METOPROLOL. [Concomitant]
     Active Substance: METOPROLOL
  3. POTASSIUM CITRATE. [Concomitant]
     Active Substance: POTASSIUM CITRATE
  4. PANTOPRAZOLE [Concomitant]
     Active Substance: PANTOPRAZOLE
  5. DUPIXENT [Suspect]
     Active Substance: DUPILUMAB
     Indication: OSTEOPOROSIS
     Dosage: 300 MG, QOW
     Route: 058
     Dates: start: 20190807
  6. HYDROCHLOROTHIAZIDE. [Concomitant]
     Active Substance: HYDROCHLOROTHIAZIDE

REACTIONS (3)
  - Condition aggravated [Not Recovered/Not Resolved]
  - Product use in unapproved indication [Unknown]
  - Osteoporosis [Not Recovered/Not Resolved]

NARRATIVE: CASE EVENT DATE: 20190807
